FAERS Safety Report 6446772-6 (Version None)
Quarter: 2009Q4

REPORT INFORMATION
  Report Type: 
  Country: None (occurrence: None)
  Receive Date: 20091119
  Receipt Date: 20091107
  Transmission Date: 20100525
  Serious: Yes (Hospitalization, Other)
  Sender: FDA-Public Use
  Company Number: PHHY2009MX48993

PATIENT
  Age: 64 Year
  Sex: Female

DRUGS (3)
  1. DIOVAN HCT [Suspect]
     Indication: HYPERTENSION
     Dosage: 1 TABLET DAILY
     Route: 048
     Dates: start: 20020501, end: 20091002
  2. NORVASC [Concomitant]
     Dosage: UNK
     Dates: start: 20091002
  3. PRAZOSIN HYDROCHLORIDE [Concomitant]
     Dosage: UNK
     Dates: start: 20091002

REACTIONS (7)
  - AMNESIA [None]
  - BLINDNESS [None]
  - DEPRESSED LEVEL OF CONSCIOUSNESS [None]
  - DIABETES MELLITUS [None]
  - FATIGUE [None]
  - HYPERGLYCAEMIA [None]
  - NEUROPATHY PERIPHERAL [None]
